FAERS Safety Report 10072310 (Version 1)
Quarter: 2014Q2

REPORT INFORMATION
  Report Type: Spontaneous
  Country: US (occurrence: None)
  Receive Date: 20140409
  Receipt Date: 20140409
  Transmission Date: 20141212
  Serious: Yes (Other)
  Sender: FDA-Public Use
  Company Number: 2269845

PATIENT
  Age: 35 Year
  Sex: Male

DRUGS (2)
  1. DEXTROSE 5% [Suspect]
     Indication: MEDICATION DILUTION
     Route: 042
  2. VANCOMYCIN HCL [Suspect]
     Indication: EVIDENCE BASED TREATMENT
     Route: 042

REACTIONS (3)
  - Red man syndrome [None]
  - Product quality issue [None]
  - Hypersensitivity [None]
